FAERS Safety Report 5849226-0 (Version None)
Quarter: 2008Q3

REPORT INFORMATION
  Report Type: 
  Country: None (occurrence: None)
  Receive Date: 20080818
  Receipt Date: 20080818
  Transmission Date: 20090109
  Serious: Yes (Other)
  Sender: FDA-Public Use
  Company Number: None

PATIENT
  Sex: Female
  Weight: 73.9363 kg

DRUGS (2)
  1. LYRICA [Suspect]
     Indication: FIBROMYALGIA
     Dosage: 300MG 3 X DAY PO
     Route: 048
     Dates: start: 20070129, end: 20070205
  2. LYRICA [Suspect]
     Indication: FIBROMYALGIA
     Dosage: 100MG ONCE AT NIGHT PO
     Route: 048
     Dates: start: 20080107, end: 20080117

REACTIONS (3)
  - DYSPNOEA [None]
  - HYPOAESTHESIA FACIAL [None]
  - PRESYNCOPE [None]
